FAERS Safety Report 17371122 (Version 2)
Quarter: 2020Q1

REPORT INFORMATION
  Report Type: Spontaneous
  Country: DE (occurrence: DE)
  Receive Date: 20200205
  Receipt Date: 20200213
  Transmission Date: 20200409
  Serious: Yes (Other)
  Sender: FDA-Public Use
  Company Number: DE-SA-2020SA027919

PATIENT
  Sex: Male

DRUGS (2)
  1. CABLIVI [Suspect]
     Active Substance: CAPLACIZUMAB-YHDP
     Dosage: UNK
     Route: 065
  2. CABLIVI [Suspect]
     Active Substance: CAPLACIZUMAB-YHDP
     Dosage: ONLY 2 DOSES OF CAPLACIZUMAB
     Route: 065

REACTIONS (5)
  - Thrombotic thrombocytopenic purpura [Unknown]
  - Platelet count decreased [Unknown]
  - Off label use [Unknown]
  - Condition aggravated [Unknown]
  - Thrombosis [Unknown]
